FAERS Safety Report 8269964-2 (Version None)
Quarter: 2012Q2

REPORT INFORMATION
  Report Type: 
  Country: None (occurrence: None)
  Receive Date: 20120410
  Receipt Date: 20120403
  Transmission Date: 20120825
  Serious: No
  Sender: FDA-Public Use
  Company Number: US-PFIZER INC-2012048762

PATIENT
  Sex: Female
  Weight: 124.72 kg

DRUGS (5)
  1. NAPROXEN (ALEVE) [Concomitant]
     Dosage: UNK
  2. HYDROCODONE [Concomitant]
     Dosage: UNK
  3. SOMA [Concomitant]
     Dosage: UNK
  4. LYRICA [Suspect]
     Indication: PAIN
     Dosage: 300 MG, 1X/DAY
     Route: 048
     Dates: start: 20070101, end: 20100201
  5. LYRICA [Suspect]
     Indication: FIBROMYALGIA

REACTIONS (2)
  - RESTLESS LEGS SYNDROME [None]
  - MALAISE [None]
